FAERS Safety Report 7712748-1 (Version None)
Quarter: 2011Q3

REPORT INFORMATION
  Report Type: 
  Country: None (occurrence: None)
  Receive Date: 20110826
  Receipt Date: 20110819
  Transmission Date: 20111222
  Serious: Yes (Hospitalization)
  Sender: FDA-Public Use
  Company Number: US-GLAXOSMITHKLINE-A0878765A

PATIENT
  Age: 57 Year
  Sex: Male
  Weight: 92.7 kg

DRUGS (6)
  1. AVANDAMET [Suspect]
     Indication: DIABETES MELLITUS
     Route: 048
     Dates: start: 20040406, end: 20070101
  2. BUPROPION HCL [Concomitant]
  3. PRAVACHOL [Concomitant]
  4. LISINOPRIL [Concomitant]
  5. INSULIN [Concomitant]
  6. AVANDIA [Suspect]
     Indication: DIABETES MELLITUS
     Route: 048
     Dates: start: 20020501, end: 20060101

REACTIONS (6)
  - CARDIAC ARREST [None]
  - FLUID OVERLOAD [None]
  - CARDIAC DISORDER [None]
  - CORONARY ARTERY DISEASE [None]
  - FLUID RETENTION [None]
  - CARDIAC OPERATION [None]
